FAERS Safety Report 5825615-5 (Version None)
Quarter: 2008Q3

REPORT INFORMATION
  Report Type: 
  Country: None (occurrence: None)
  Receive Date: 20080729
  Receipt Date: 20080722
  Transmission Date: 20090109
  Serious: Yes (Hospitalization)
  Sender: FDA-Public Use
  Company Number: A0739964A

PATIENT
  Sex: Female

DRUGS (14)
  1. ZOFRAN [Suspect]
     Indication: NAUSEA
     Route: 042
     Dates: start: 20060401
  2. PLAVIX [Concomitant]
     Dates: start: 20050301
  3. TOPROL-XL [Concomitant]
     Dosage: 100MG IN THE MORNING
  4. AMILORIDE HCL AND HYDROCHLOROTHIAZIDE [Concomitant]
  5. ASPIRIN [Concomitant]
  6. CALCIUM+VITAMIN D [Concomitant]
  7. STOOL SOFTENER [Concomitant]
  8. LOVAZA [Concomitant]
  9. VITAMIN CAP [Concomitant]
  10. DIOVAN HCT [Concomitant]
  11. CLOPIDOGREL [Concomitant]
  12. NORVASC [Concomitant]
  13. LESCOL [Concomitant]
  14. LIPITOR [Concomitant]

REACTIONS (5)
  - ADVERSE DRUG REACTION [None]
  - DEAFNESS UNILATERAL [None]
  - HERNIA [None]
  - PAIN IN EXTREMITY [None]
  - VERTIGO [None]
